FAERS Safety Report 21463525 (Version 3)
Quarter: 2022Q4

REPORT INFORMATION
  Report Type: Spontaneous
  Country: JP (occurrence: JP)
  Receive Date: 20221017
  Receipt Date: 20221215
  Transmission Date: 20230113
  Serious: Yes (Other)
  Sender: FDA-Public Use
  Company Number: JP-SUN PHARMACEUTICAL INDUSTRIES LTD-2022R1-357726

PATIENT
  Age: 79 Year
  Sex: Female

DRUGS (1)
  1. LIORESAL [Suspect]
     Active Substance: BACLOFEN
     Indication: Infarction
     Dosage: 2 TABLETS PER TIME, 2 TIMES PER DAY
     Route: 048
     Dates: start: 202210

REACTIONS (2)
  - Hallucination, visual [Unknown]
  - Hallucination [Unknown]
